FAERS Safety Report 7031025-8 (Version None)
Quarter: 2010Q4

REPORT INFORMATION
  Report Type: 
  Country: None (occurrence: None)
  Receive Date: 20101006
  Receipt Date: 20100924
  Transmission Date: 20110411
  Serious: Yes (Other)
  Sender: FDA-Public Use
  Company Number: US-PFIZER INC-2008069495

PATIENT
  Sex: Female
  Weight: 54.422 kg

DRUGS (6)
  1. LYRICA [Suspect]
     Indication: SCIATICA
     Dosage: UNK
     Route: 048
     Dates: start: 20080101
  2. LYRICA [Suspect]
     Indication: NEURALGIA
  3. DARVOCET [Suspect]
     Indication: PAIN
     Dosage: 650/100MG ; UNK
     Route: 048
     Dates: start: 20100801, end: 20100901
  4. ACTONEL [Concomitant]
     Indication: BONE PAIN
     Dosage: 150 MG, MONTHLY
     Route: 048
  5. ACTONEL [Concomitant]
     Indication: BONE DISORDER
  6. XANAX [Concomitant]
     Indication: SLEEP DISORDER
     Dosage: AS NEEDED

REACTIONS (13)
  - ABNORMAL DREAMS [None]
  - BLADDER PAIN [None]
  - DRUG INEFFECTIVE [None]
  - EAR DISCOMFORT [None]
  - HYPOAESTHESIA [None]
  - INFLUENZA LIKE ILLNESS [None]
  - INSOMNIA [None]
  - MALAISE [None]
  - PAIN [None]
  - PAIN IN EXTREMITY [None]
  - PARAESTHESIA [None]
  - SPINAL DECOMPRESSION [None]
  - TINNITUS [None]
